FAERS Safety Report 21706962 (Version 7)
Quarter: 2023Q2

REPORT INFORMATION
  Report Type: Spontaneous
  Country: US (occurrence: US)
  Receive Date: 20221209
  Receipt Date: 20230626
  Transmission Date: 20230722
  Serious: Yes (Other)
  Sender: FDA-Public Use
  Company Number: US-PFIZER INC-202201355372

PATIENT
  Age: 84 Year
  Sex: Female
  Weight: 113.78 kg

DRUGS (1)
  1. VYNDAMAX [Suspect]
     Active Substance: TAFAMIDIS
     Indication: Amyloidosis
     Dosage: 61 MG, 1X/DAY

REACTIONS (4)
  - Blindness [Unknown]
  - Deafness [Unknown]
  - Condition aggravated [Unknown]
  - Hypoacusis [Unknown]

NARRATIVE: CASE EVENT DATE: 20180101
